FAERS Safety Report 7001328-1 (Version None)
Quarter: 2010Q3

REPORT INFORMATION
  Report Type: 
  Country: None (occurrence: None)
  Receive Date: 20100920
  Receipt Date: 20100513
  Transmission Date: 20110219
  Serious: Yes (Other)
  Sender: FDA-Public Use
  Company Number: US-ASTRAZENECA-2010SE21960

PATIENT
  Sex: Female
  Weight: 68 kg

DRUGS (5)
  1. SEROQUEL [Suspect]
     Indication: BIPOLAR DISORDER
     Route: 048
     Dates: start: 20080101, end: 20100429
  2. ZOLOFT [Concomitant]
     Indication: BIPOLAR DISORDER
     Route: 048
  3. WELLBUTRIN [Concomitant]
     Indication: BIPOLAR DISORDER
     Route: 048
  4. VALTREXONE [Concomitant]
     Route: 048
  5. NORVASC [Concomitant]
     Indication: HYPERTENSION
     Route: 048

REACTIONS (3)
  - LOSS OF CONSCIOUSNESS [None]
  - MEMORY IMPAIRMENT [None]
  - SUICIDE ATTEMPT [None]
